FAERS Safety Report 11175456 (Version 4)
Quarter: 2016Q1

REPORT INFORMATION
  Report Type: Report from Study
  Country: HK (occurrence: HK)
  Receive Date: 20150609
  Receipt Date: 20160104
  Transmission Date: 20160525
  Serious: Yes (Other)
  Sender: FDA-Public Use
  Company Number: HK-BAYER-2015-276115

PATIENT
  Age: 63 Year
  Sex: Male

DRUGS (1)
  1. STIVARGA [Suspect]
     Active Substance: REGORAFENIB
     Dosage: 160 MG, QD
     Route: 048
     Dates: end: 20150630

REACTIONS (7)
  - Hypertension [Recovered/Resolved]
  - Rash [Recovered/Resolved]
  - Skin fissures [None]
  - Blood pressure increased [None]
  - Carcinoembryonic antigen increased [Not Recovered/Not Resolved]
  - Dry skin [Recovering/Resolving]
  - Back pain [None]

NARRATIVE: CASE EVENT DATE: 2015
